FAERS Safety Report 10531465 (Version 3)
Quarter: 2014Q4

REPORT INFORMATION
  Report Type: Spontaneous
  Country: GB (occurrence: GB)
  Receive Date: 20141021
  Receipt Date: 20141203
  Transmission Date: 20150529
  Serious: Yes (Death, Other)
  Sender: FDA-Public Use
  Company Number: GB-TEVA-515639ISR

PATIENT
  Age: 66 Year
  Sex: Female
  Weight: 50 kg

DRUGS (6)
  1. OXALIPLATIN. [Suspect]
     Active Substance: OXALIPLATIN
     Indication: ADJUVANT THERAPY
     Dosage: 200 MILLIGRAM DAILY;
     Route: 042
     Dates: start: 20140703, end: 20140703
  2. DOMPERIDONE [Concomitant]
     Active Substance: DOMPERIDONE
     Dosage: 30 MILLIGRAM DAILY;
     Route: 048
     Dates: start: 20140703, end: 20140709
  3. XELODA [Suspect]
     Active Substance: CAPECITABINE
     Indication: ADJUVANT THERAPY
     Dosage: 3000 MILLIGRAM DAILY;
     Route: 048
     Dates: start: 20140704, end: 20140709
  4. XELODA [Suspect]
     Active Substance: CAPECITABINE
     Route: 065
  5. LOPERAMIDE [Concomitant]
     Active Substance: LOPERAMIDE
     Indication: DIARRHOEA
     Dosage: 2 MILLIGRAM DAILY;
     Route: 048
     Dates: start: 20140703, end: 20140709
  6. DEXAMETHASONE. [Concomitant]
     Active Substance: DEXAMETHASONE
     Dosage: 8 MILLIGRAM DAILY;
     Route: 048
     Dates: start: 20140703, end: 20140706

REACTIONS (8)
  - Dysgeusia [Unknown]
  - Stoma complication [Unknown]
  - Sudden death [Fatal]
  - Arrhythmia [Fatal]
  - Cardiac arrest [Fatal]
  - Vomiting [Unknown]
  - Nausea [Unknown]
  - Circulatory collapse [Unknown]

NARRATIVE: CASE EVENT DATE: 20140709
